FAERS Safety Report 21217028 (Version 1)
Quarter: 2022Q3

REPORT INFORMATION
  Report Type: Spontaneous
  Country: US (occurrence: None)
  Receive Date: 20220816
  Receipt Date: 20220816
  Transmission Date: 20221027
  Serious: Yes (Other)
  Sender: FDA-Public Use
  Company Number: US-ROCHE-3011204

PATIENT
  Age: 64 Year
  Sex: Female
  Weight: 59.9 kg

DRUGS (1)
  1. ALECENSA [Suspect]
     Active Substance: ALECTINIB HYDROCHLORIDE
     Indication: Non-small cell lung cancer
     Route: 065

REACTIONS (6)
  - Tooth fracture [Unknown]
  - Blood creatine phosphokinase increased [Recovered/Resolved]
  - Hypertransaminasaemia [Recovered/Resolved]
  - Hyperbilirubinaemia [Recovered/Resolved]
  - Neuropathy peripheral [Recovering/Resolving]
  - Fatigue [Recovering/Resolving]

NARRATIVE: CASE EVENT DATE: 20220107
